FAERS Safety Report 5727758-3 (Version None)
Quarter: 2008Q2

REPORT INFORMATION
  Report Type: 
  Country: None (occurrence: None)
  Receive Date: 20080505
  Receipt Date: 20080422
  Transmission Date: 20081010
  Serious: Yes (Other)
  Sender: FDA-Public Use
  Company Number: FR-ELI_LILLY_AND_COMPANY-FR200804005449

PATIENT
  Sex: Female

DRUGS (5)
  1. EVISTA [Suspect]
     Indication: OSTEOPOROSIS PROPHYLAXIS
     Dosage: UNK, UNK
     Route: 048
     Dates: start: 20080102, end: 20080212
  2. TAHOR [Concomitant]
     Indication: DYSLIPIDAEMIA
     Dosage: UNK, UNK
     Route: 048
     Dates: start: 20070801, end: 20080101
  3. ULTRACET [Concomitant]
     Indication: MUSCULOSKELETAL PAIN
     Route: 048
  4. TRAMADOL HCL [Concomitant]
     Indication: MUSCULOSKELETAL PAIN
     Route: 048
  5. LIVIAL [Concomitant]
     Indication: OSTEOPOROSIS PROPHYLAXIS
     Dates: end: 20071101

REACTIONS (1)
  - CYTOLYTIC HEPATITIS [None]
